FAERS Safety Report 5446330-6 (Version None)
Quarter: 2007Q3

REPORT INFORMATION
  Report Type: 
  Country: None (occurrence: None)
  Receive Date: 20070907
  Receipt Date: 20070827
  Transmission Date: 20080115
  Serious: Yes (Death)
  Sender: FDA-Public Use
  Company Number: BR-ROCHE-514094

PATIENT
  Age: 80 Year
  Sex: Female

DRUGS (2)
  1. BONIVA [Suspect]
     Indication: OSTEOPOROSIS
     Route: 048
     Dates: start: 20070301, end: 20070501
  2. UNSPECIFIED DRUG [Concomitant]
     Indication: HYPERTENSION
     Dates: end: 20070501

REACTIONS (2)
  - CHEST PAIN [None]
  - DEATH [None]
